FAERS Safety Report 8617258-5 (Version None)
Quarter: 2012Q3

REPORT INFORMATION
  Report Type: 
  Country: None (occurrence: None)
  Receive Date: 20120823
  Receipt Date: 20120810
  Transmission Date: 20120928
  Serious: No
  Sender: FDA-Public Use
  Company Number: US-ASTRAZENECA-2012SE56892

PATIENT
  Age: 65 Year
  Sex: Female

DRUGS (1)
  1. SEROQUEL XR [Suspect]
     Indication: DEPRESSION
     Route: 048

REACTIONS (7)
  - PAIN [None]
  - MENTAL DISORDER [None]
  - NERVOUSNESS [None]
  - HYPERTENSION [None]
  - AGITATION [None]
  - HEADACHE [None]
  - ADVERSE EVENT [None]
